FAERS Safety Report 6173057-8 (Version None)
Quarter: 2009Q2

REPORT INFORMATION
  Report Type: 
  Country: None (occurrence: None)
  Receive Date: 20090430
  Receipt Date: 20090422
  Transmission Date: 20091009
  Serious: Yes (Life-Threatening, Hospitalization)
  Sender: FDA-Public Use
  Company Number: US-AMGEN-QUU320173

PATIENT
  Sex: Female

DRUGS (7)
  1. ENBREL [Suspect]
     Indication: RHEUMATOID ARTHRITIS
     Route: 058
     Dates: start: 20000101
  2. CYMBALTA [Concomitant]
  3. NORVASC [Concomitant]
  4. PROTONIX [Concomitant]
  5. AMBIEN [Concomitant]
  6. SULINDAC [Concomitant]
  7. PROMETRIUM [Concomitant]

REACTIONS (2)
  - CHOLELITHIASIS [None]
  - HISTOPLASMOSIS DISSEMINATED [None]
